FAERS Safety Report 22378992 (Version 1)
Quarter: 2023Q2

REPORT INFORMATION
  Report Type: Spontaneous
  Country: US (occurrence: US)
  Receive Date: 20230529
  Receipt Date: 20230529
  Transmission Date: 20230721
  Serious: No
  Sender: FDA-Public Use
  Company Number: US-ELI_LILLY_AND_COMPANY-US202305012792

PATIENT
  Sex: Male

DRUGS (2)
  1. TALTZ [Suspect]
     Active Substance: IXEKIZUMAB
     Indication: Product used for unknown indication
     Dosage: UNK UNK, UNKNOWN
     Route: 065
     Dates: start: 202207
  2. FORTEO [Suspect]
     Active Substance: TERIPARATIDE
     Indication: Product used for unknown indication
     Dosage: UNK UNK, UNKNOWN
     Route: 065
     Dates: start: 202207

REACTIONS (9)
  - Pressure of speech [Unknown]
  - Paranoia [Unknown]
  - Mania [Unknown]
  - Tooth disorder [Unknown]
  - Back disorder [Unknown]
  - Burning sensation [Unknown]
  - Hypoaesthesia [Unknown]
  - Arthritis [Unknown]
  - Muscle spasms [Unknown]
